FAERS Safety Report 5852446-2 (Version None)
Quarter: 2008Q3

REPORT INFORMATION
  Report Type: 
  Country: None (occurrence: None)
  Receive Date: 20080821
  Receipt Date: 20080814
  Transmission Date: 20090109
  Serious: Yes (Hospitalization)
  Sender: FDA-Public Use
  Company Number: US-JNJFOC-20080804333

PATIENT
  Sex: Male
  Weight: 83.92 kg

DRUGS (4)
  1. FLEXERIL [Suspect]
     Indication: MUSCLE RELAXANT THERAPY
     Route: 048
  2. DURAGESIC-100 [Suspect]
     Indication: PAIN
     Route: 003
  3. CYMBALTA [Concomitant]
     Indication: DEPRESSION
     Route: 048
  4. TRAMADOL HCL [Concomitant]
     Indication: PAIN
     Dosage: AS NEEDED
     Route: 048

REACTIONS (5)
  - FALL [None]
  - INTENTIONAL DRUG MISUSE [None]
  - INTERVERTEBRAL DISC PROTRUSION [None]
  - MUSCLE SPASMS [None]
  - URINARY INCONTINENCE [None]
